FAERS Safety Report 21905279 (Version 1)
Quarter: 2023Q1

REPORT INFORMATION
  Report Type: Report from Study
  Country: US (occurrence: US)
  Receive Date: 20230124
  Receipt Date: 20230124
  Transmission Date: 20230418
  Serious: Yes (Other)
  Sender: FDA-Public Use
  Company Number: US-MYLANLABS-2023M1007799

PATIENT
  Sex: Female

DRUGS (3)
  1. LYRICA [Suspect]
     Active Substance: PREGABALIN
     Indication: Product used for unknown indication
     Dosage: UNK
     Route: 065
     Dates: end: 2022
  2. SOLIRIS [Suspect]
     Active Substance: ECULIZUMAB
     Indication: Myasthenia gravis
     Dosage: UNK
     Route: 065
  3. ULTOMIRIS [Suspect]
     Active Substance: RAVULIZUMAB-CWVZ
     Indication: Myasthenia gravis
     Dosage: UNK
     Route: 065

REACTIONS (15)
  - Impaired gastric emptying [Unknown]
  - Eyelid ptosis [Unknown]
  - Migraine [Unknown]
  - Swelling [Unknown]
  - Suspected COVID-19 [Unknown]
  - Haemoglobin decreased [Unknown]
  - Gastrointestinal tract irritation [Unknown]
  - Central venous catheterisation [Unknown]
  - Nausea [Recovered/Resolved]
  - Fatigue [Unknown]
  - Malaise [Unknown]
  - Speech disorder [Unknown]
  - Weight decreased [Unknown]
  - Blood potassium decreased [Unknown]
  - Blood pressure decreased [Recovered/Resolved]

NARRATIVE: CASE EVENT DATE: 20220810
